FAERS Safety Report 8304335-1 (Version None)
Quarter: 2012Q2

REPORT INFORMATION
  Report Type: 
  Country: None (occurrence: None)
  Receive Date: 20120423
  Receipt Date: 20120423
  Transmission Date: 20120825
  Serious: Yes (Hospitalization)
  Sender: FDA-Public Use
  Company Number: None

PATIENT
  Age: 60 Year
  Sex: Female
  Weight: 130.63 kg

DRUGS (1)
  1. ARAVA [Suspect]
     Indication: RHEUMATOID ARTHRITIS
     Route: 048
     Dates: start: 20120228, end: 20120414

REACTIONS (6)
  - COUGH [None]
  - CHEST PAIN [None]
  - DYSPNOEA [None]
  - OESOPHAGEAL PAIN [None]
  - DYSPHAGIA [None]
  - WHEEZING [None]
